FAERS Safety Report 10607008 (Version 1)
Quarter: 2014Q4

REPORT INFORMATION
  Report Type: Spontaneous
  Country: US (occurrence: None)
  Receive Date: 20141124
  Receipt Date: 20141124
  Transmission Date: 20150529
  Serious: No
  Sender: FDA-Public Use
  Company Number: None

PATIENT
  Age: 70 Year
  Sex: Male

DRUGS (1)
  1. STELARA [Suspect]
     Active Substance: USTEKINUMAB
     Dosage: 45 MG Q12W SQ
     Route: 058
     Dates: start: 20141106

REACTIONS (8)
  - Pain in jaw [None]
  - Local swelling [None]
  - Pharyngeal oedema [None]
  - Arthralgia [None]
  - Joint swelling [None]
  - Dyspnoea [None]
  - Peripheral swelling [None]
  - Gait disturbance [None]

NARRATIVE: CASE EVENT DATE: 20141107
